FAERS Safety Report 5034357-8 (Version None)
Quarter: 2006Q2

REPORT INFORMATION
  Report Type: 
  Country: None (occurrence: None)
  Receive Date: 20060626
  Receipt Date: 20060617
  Transmission Date: 20061013
  Serious: Yes (Other)
  Sender: FDA-Public Use
  Company Number: GB-ROCHE-452569

PATIENT
  Age: 28 Year
  Sex: Female

DRUGS (1)
  1. XENICAL [Suspect]
     Indication: OBESITY
     Route: 048
     Dates: start: 20060609, end: 20060617

REACTIONS (4)
  - BLOOD URINE PRESENT [None]
  - DIZZINESS [None]
  - HAEMATEMESIS [None]
  - HAEMATOCHEZIA [None]
